FAERS Safety Report 6431784-9 (Version None)
Quarter: 2009Q4

REPORT INFORMATION
  Report Type: 
  Country: None (occurrence: None)
  Receive Date: 20091104
  Receipt Date: 20091027
  Transmission Date: 20100525
  Serious: Yes (Other)
  Sender: FDA-Public Use
  Company Number: CLOF-1000748

PATIENT
  Age: 1 Year
  Sex: Female

DRUGS (8)
  1. EVOLRA (CLOFARABINE) SOLUTION FOR INFUSION [Suspect]
     Indication: ACUTE MYELOID LEUKAEMIA
  2. CAMPATH [Suspect]
     Indication: PROPHYLAXIS AGAINST GRAFT VERSUS HOST DISEASE
  3. BUSULFAN (BUSULFAN) MG/KG [Suspect]
     Indication: ACUTE MYELOID LEUKAEMIA
     Dosage: 4 MG/KG, QD X 4 DAYS
  4. CYCLOPHOSPHAMIDE [Suspect]
     Indication: ACUTE MYELOID LEUKAEMIA
     Dosage: 60 MG/KG, QD X 2
  5. MELPHALAN HYDROCHLORIDE [Suspect]
     Indication: ACUTE MYELOID LEUKAEMIA
     Dosage: 140 MG/M2
  6. CYCLOSPORINE [Suspect]
     Indication: PROPHYLAXIS AGAINST GRAFT VERSUS HOST DISEASE
  7. DAUNOXOME [Suspect]
     Indication: PROPHYLAXIS AGAINST GRAFT VERSUS HOST DISEASE
  8. METHOTREXATE [Suspect]
     Indication: PROPHYLAXIS AGAINST GRAFT VERSUS HOST DISEASE

REACTIONS (5)
  - ACUTE MYELOID LEUKAEMIA [None]
  - ADENOVIRUS INFECTION [None]
  - DISEASE RECURRENCE [None]
  - PULMONARY HYPERTENSION [None]
  - RENAL IMPAIRMENT [None]
